FAERS Safety Report 5674954-X (Version None)
Quarter: 2008Q2

REPORT INFORMATION
  Report Type: 
  Country: None (occurrence: None)
  Receive Date: 20080303
  Receipt Date: 20070813
  Transmission Date: 20081010
  Serious: Yes (Hospitalization)
  Sender: FDA-Public Use
  Company Number: RB-7677-2007

PATIENT
  Age: 26 Year
  Sex: Female

DRUGS (7)
  1. SUBOXONE [Suspect]
     Dosage: 8 MG QD SUBLINGUAL ; 8 MG QID SUBLINGUAL ; 4 MG QID SUBLINGUAL
     Route: 060
     Dates: start: 20061001, end: 20070810
  2. SUBOXONE [Suspect]
     Dosage: 8 MG QD SUBLINGUAL ; 8 MG QID SUBLINGUAL ; 4 MG QID SUBLINGUAL
     Route: 060
     Dates: start: 20070810
  3. SUBOXONE [Suspect]
     Dosage: 8 MG QD SUBLINGUAL ; 8 MG QID SUBLINGUAL ; 4 MG QID SUBLINGUAL
     Route: 060
     Dates: start: 20070816
  4. METHADON HCL TAB [Concomitant]
  5. OXYCONTIN [Concomitant]
  6. XANAX [Concomitant]
  7. CLONAZEPAM [Concomitant]

REACTIONS (1)
  - DRUG DEPENDENCE [None]
